FAERS Safety Report 25959671 (Version 1)
Quarter: 2025Q4

REPORT INFORMATION
  Report Type: Spontaneous
  Country: US (occurrence: US)
  Receive Date: 20251026
  Receipt Date: 20251026
  Transmission Date: 20260118
  Serious: Yes (Other)
  Sender: SANOFI AVENTIS
  Company Number: US-SA-2025SA314735

PATIENT
  Age: 37 Year
  Sex: Female
  Weight: 51.36 kg

DRUGS (30)
  1. DUPIXENT [Suspect]
     Active Substance: DUPILUMAB
     Indication: Dermatitis atopic
     Dosage: 300 MG, QOW
     Route: 058
  2. WAKIX [Concomitant]
     Active Substance: PITOLISANT HYDROCHLORIDE
  3. FLUOCINOLONE ACETONIDE [Concomitant]
     Active Substance: FLUOCINOLONE ACETONIDE
  4. TRIAMCINOLONE ACETONIDE [Concomitant]
     Active Substance: TRIAMCINOLONE ACETONIDE
  5. MOMETASONE FUROATE [Concomitant]
     Active Substance: MOMETASONE FUROATE
  6. SUCRALFATE [Concomitant]
     Active Substance: SUCRALFATE
  7. MUPIROCIN [Concomitant]
     Active Substance: MUPIROCIN
  8. VEVYE [Concomitant]
     Active Substance: CYCLOSPORINE
  9. POTASSIUM CHLORIDE [Concomitant]
     Active Substance: POTASSIUM CHLORIDE
  10. MOXIFLOXACIN [Concomitant]
     Active Substance: MOXIFLOXACIN
  11. OFLOXACIN [Concomitant]
     Active Substance: OFLOXACIN
  12. OLOPATADINE HYDROCHLORIDE [Concomitant]
     Active Substance: OLOPATADINE HYDROCHLORIDE
  13. PATADAY ONCE DAILY RELIEF [Concomitant]
     Active Substance: OLOPATADINE HYDROCHLORIDE
  14. TRELEGY ELLIPTA [Concomitant]
     Active Substance: FLUTICASONE FUROATE\UMECLIDINIUM BROMIDE\VILANTEROL TRIFENATATE
  15. BREZTRI [Concomitant]
     Active Substance: BUDESONIDE\FORMOTEROL\GLYCOPYRROLATE
  16. AZELASTINE HYDROCHLORIDE [Concomitant]
     Active Substance: AZELASTINE HYDROCHLORIDE
  17. ALBUTEROL SULFATE [Concomitant]
     Active Substance: ALBUTEROL SULFATE
  18. XYZAL [Concomitant]
     Active Substance: LEVOCETIRIZINE DIHYDROCHLORIDE
  19. ZYRTEC [Concomitant]
     Active Substance: CETIRIZINE HYDROCHLORIDE
  20. PANTOPRAZOLE SODIUM [Concomitant]
     Active Substance: PANTOPRAZOLE SODIUM
  21. OMEPRAZOLE [Concomitant]
     Active Substance: OMEPRAZOLE
  22. FAMOTIDINE [Concomitant]
     Active Substance: FAMOTIDINE
  23. HAILEY 1.5/30 [Concomitant]
     Active Substance: ETHINYL ESTRADIOL\NORETHINDRONE ACETATE
  24. MELATONIN [Concomitant]
     Active Substance: MELATONIN
  25. VITAMIN D3 [Concomitant]
     Active Substance: CHOLECALCIFEROL
  26. VITAMIN C [Concomitant]
     Active Substance: ASCORBIC ACID
  27. VITAMIN D3 [Concomitant]
     Active Substance: CHOLECALCIFEROL
  28. ROSUVASTATIN CALCIUM [Concomitant]
     Active Substance: ROSUVASTATIN CALCIUM
  29. METHYLPHENIDATE [Concomitant]
     Active Substance: METHYLPHENIDATE
  30. FLUTICASONE PROPIONATE [Concomitant]
     Active Substance: FLUTICASONE PROPIONATE

REACTIONS (2)
  - Bone cancer [Unknown]
  - Leukaemia [Unknown]

NARRATIVE: CASE EVENT DATE: 20250101
